FAERS Safety Report 10408453 (Version 1)
Quarter: 2014Q3

REPORT INFORMATION
  Report Type: Spontaneous
  Country: US (occurrence: None)
  Receive Date: 20140825
  Receipt Date: 20140825
  Transmission Date: 20150326
  Serious: Yes (Death, Hospitalization)
  Sender: FDA-Public Use
  Company Number: None

PATIENT
  Age: 71 Year
  Sex: Male
  Weight: 121 kg

DRUGS (3)
  1. VELCADE [Suspect]
     Active Substance: BORTEZOMIB
  2. RITUXIMAB [Suspect]
     Active Substance: RITUXIMAB
     Dosage: UNSURE OF EXACT AMOUTN OF RITUXAN RECIEVED AS THIS INFUSION WAS DISCONTINEUD SOMEWHERE IN THE MIDDLE OF GETTING FULL DOSE.
  3. BENDAMUSTINE HYDROCHLORIDE PS-341 [Suspect]
     Active Substance: BENDAMUSTINE HYDROCHLORIDE

REACTIONS (3)
  - Confusional state [None]
  - Lethargy [None]
  - Respiratory failure [None]

NARRATIVE: CASE EVENT DATE: 20140811
